FAERS Safety Report 23014242 (Version 1)
Quarter: 2023Q4

REPORT INFORMATION
  Report Type: Spontaneous
  Country: US (occurrence: US)
  Receive Date: 20231002
  Receipt Date: 20231002
  Transmission Date: 20240109
  Serious: No
  Sender: FDA-Public Use
  Company Number: US-BRISTOL-MYERS SQUIBB COMPANY-2023-138248

PATIENT
  Sex: Male

DRUGS (1)
  1. OPDUALAG [Suspect]
     Active Substance: NIVOLUMAB\RELATLIMAB-RMBW
     Indication: Product used for unknown indication
     Dosage: DOSE : ^STANDARD DOSE^;
     Route: 042
     Dates: start: 20230927

REACTIONS (2)
  - Extravasation [Unknown]
  - Incorrect dose administered [Unknown]
